FAERS Safety Report 19221161 (Version 2)
Quarter: 2021Q2

REPORT INFORMATION
  Report Type: Spontaneous
  Country: GR (occurrence: GR)
  Receive Date: 20210505
  Receipt Date: 20210517
  Transmission Date: 20210717
  Serious: Yes (Other)
  Sender: FDA-Public Use
  Company Number: GR-IPSEN BIOPHARMACEUTICALS, INC.-2021-11241

PATIENT
  Age: 17 Year
  Sex: Female

DRUGS (2)
  1. BOTULINUM TOXIN TYPE A [Suspect]
     Active Substance: BOTULINUM TOXIN TYPE A
     Indication: OFF LABEL USE
  2. BOTULINUM TOXIN TYPE A [Suspect]
     Active Substance: BOTULINUM TOXIN TYPE A
     Indication: JOINT STIFFNESS
     Dosage: UNK, SINGLE
     Route: 030

REACTIONS (4)
  - Joint hyperextension [Recovered/Resolved]
  - Iatrogenic injury [Recovered/Resolved]
  - Tendon rupture [Recovered/Resolved]
  - Off label use [Unknown]
